FAERS Safety Report 16337419 (Version 1)
Quarter: 2019Q2

REPORT INFORMATION
  Report Type: Spontaneous
  Country: US (occurrence: US)
  Receive Date: 20190520
  Receipt Date: 20190520
  Transmission Date: 20190711
  Serious: Yes (Other)
  Sender: FDA-Public Use
  Company Number: None

PATIENT
  Age: 52 Year
  Sex: Male
  Weight: 88.65 kg

DRUGS (1)
  1. XARELTO [Suspect]
     Active Substance: RIVAROXABAN
     Indication: DEEP VEIN THROMBOSIS
     Route: 048
     Dates: start: 20190422, end: 20190517

REACTIONS (4)
  - Pain in extremity [None]
  - Drug ineffective [None]
  - Oedema peripheral [None]
  - Deep vein thrombosis [None]

NARRATIVE: CASE EVENT DATE: 20190517
